FAERS Safety Report 25424441 (Version 1)
Quarter: 2025Q2

REPORT INFORMATION
  Report Type: Spontaneous
  Country: JP (occurrence: JP)
  Receive Date: 20250611
  Receipt Date: 20250611
  Transmission Date: 20250716
  Serious: Yes (Hospitalization)
  Sender: MERCK SHARP & DOHME LLC
  Company Number: JP-AstraZeneca-2024A209475

PATIENT
  Age: 63 Year
  Sex: Male
  Weight: 58 kg

DRUGS (16)
  1. PEMBROLIZUMAB [Suspect]
     Active Substance: PEMBROLIZUMAB
     Indication: Non-small cell lung cancer
     Dosage: UNK UNK, ONCE EVERY 3 WK
     Dates: start: 20241115, end: 20241115
  2. PEMBROLIZUMAB [Suspect]
     Active Substance: PEMBROLIZUMAB
     Indication: Non-small cell lung cancer
     Dosage: 200 MG, ONCE EVERY 3 WK
     Dates: start: 20240712, end: 20240822
  3. OMEPRAZOLE [Concomitant]
     Active Substance: OMEPRAZOLE
     Indication: Gastritis
     Dosage: 20 MILLIGRAM, BID
     Dates: start: 20240912
  4. ACETAMINOPHEN [Concomitant]
     Active Substance: ACETAMINOPHEN
     Indication: Pain
     Dates: start: 20240816
  5. CROTAMITON [Concomitant]
     Active Substance: CROTAMITON
     Indication: Pruritus
     Dates: start: 20240914
  6. BISOPROLOL [Concomitant]
     Active Substance: BISOPROLOL
     Indication: Hypertension
     Dates: start: 20240902
  7. LEVOFLOXACIN HEMIHYDRATE [Concomitant]
     Active Substance: LEVOFLOXACIN
     Indication: Infection
     Dates: start: 20240925
  8. AMPICILLIN SODIUM\SULBACTAM SODIUM [Concomitant]
     Active Substance: AMPICILLIN SODIUM\SULBACTAM SODIUM
     Indication: Pneumonia aspiration
     Dosage: 3 GRAM, QID
     Dates: start: 20240908
  9. WHITE PETROLATUM [Concomitant]
     Active Substance: PETROLATUM
     Indication: Pruritus
     Dates: start: 20240913
  10. PANTHENOL [DEXPANTHENOL] [Concomitant]
     Indication: Weight decreased
     Dosage: 500 MILLIGRAM, QD
     Dates: start: 20240919
  11. DEXTROSE\POTASSIUM CHLORIDE\SODIUM CHLORIDE\SODIUM LACTATE [Concomitant]
     Active Substance: DEXTROSE MONOHYDRATE\POTASSIUM CHLORIDE\SODIUM CHLORIDE\SODIUM LACTATE
     Indication: Weight decreased
     Dosage: 500 MILLILITER, QD
     Dates: start: 20240921
  12. BACITRACIN [Concomitant]
     Active Substance: BACITRACIN
     Indication: Infection
     Dates: start: 20240920
  13. VANTELIN KOWA EX [Concomitant]
     Indication: Arthralgia
     Dates: start: 2019
  14. DENOSUMAB [Concomitant]
     Active Substance: DENOSUMAB
     Indication: Bone cancer metastatic
     Dosage: 120 MILLIGRAM, Q4W
     Dates: start: 20240702
  15. SALIVENT [Concomitant]
     Indication: Dry mouth
     Dates: start: 20240920
  16. SILODOSIN [Concomitant]
     Active Substance: SILODOSIN
     Indication: Benign prostatic hyperplasia
     Dosage: 4 MILLIGRAM, BID
     Dates: start: 20240826, end: 20240911

REACTIONS (1)
  - Paralysis recurrent laryngeal nerve [Recovering/Resolving]

NARRATIVE: CASE EVENT DATE: 20240912
